FAERS Safety Report 15501623 (Version 1)
Quarter: 2018Q4

REPORT INFORMATION
  Report Type: Report from Study
  Country: US (occurrence: US)
  Receive Date: 20181015
  Receipt Date: 20181015
  Transmission Date: 20190205
  Serious: No
  Sender: FDA-Public Use
  Company Number: US-AMGEN-USASL2017176110

PATIENT
  Sex: Female

DRUGS (5)
  1. ARANESP [Suspect]
     Active Substance: DARBEPOETIN ALFA
     Indication: WHITE BLOOD CELL COUNT INCREASED
  2. ARANESP [Suspect]
     Active Substance: DARBEPOETIN ALFA
     Indication: ANAEMIA
  3. ARANESP [Suspect]
     Active Substance: DARBEPOETIN ALFA
     Indication: NEOPLASM
  4. ARANESP [Suspect]
     Active Substance: DARBEPOETIN ALFA
     Indication: MYELOID LEUKAEMIA
     Dosage: UNK
     Route: 065
  5. ARANESP [Suspect]
     Active Substance: DARBEPOETIN ALFA
     Indication: LEUKAEMIA BASOPHILIC

REACTIONS (1)
  - Off label use [Unknown]
